FAERS Safety Report 7471941-6 (Version None)
Quarter: 2011Q2

REPORT INFORMATION
  Report Type: 
  Country: None (occurrence: None)
  Receive Date: 20110511
  Receipt Date: 20100727
  Transmission Date: 20111010
  Serious: No
  Sender: FDA-Public Use
  Company Number: A0874105A

PATIENT
  Sex: Female

DRUGS (3)
  1. TYKERB [Suspect]
     Dosage: 500MG TWICE PER DAY
     Route: 048
     Dates: start: 20100712
  2. DECADRON [Concomitant]
  3. SENNA-MINT WAF [Suspect]
     Indication: CONSTIPATION
     Route: 065
     Dates: end: 20100701

REACTIONS (3)
  - INSOMNIA [None]
  - DIARRHOEA [None]
  - DYSKINESIA [None]
